FAERS Safety Report 4440578-5 (Version None)
Quarter: 2004Q3

REPORT INFORMATION
  Report Type: 
  Country: None (occurrence: None)
  Receive Date: 20040903
  Receipt Date: 20040813
  Transmission Date: 20050211
  Serious: Yes (Disabling)
  Sender: FDA-Public Use
  Company Number: GB-ROCHE-377570

PATIENT
  Sex: Male

DRUGS (2)
  1. ROACCUTANE [Suspect]
     Indication: DRUG USE FOR UNKNOWN INDICATION
     Route: 048
  2. ROACCUTANE [Suspect]
     Dosage: DOSAGE REPORTED AS: VARIOUS (LONG TERM LOW DOSE - UNDER CARE OF PROF. CUNLZFFE).
     Route: 048

REACTIONS (2)
  - DEAFNESS [None]
  - DEAFNESS UNILATERAL [None]
